FAERS Safety Report 10017591 (Version 2)
Quarter: 2014Q1

REPORT INFORMATION
  Report Type: Spontaneous
  Country: US (occurrence: US)
  Receive Date: 20140318
  Receipt Date: 20140318
  Transmission Date: 20141002
  Serious: Yes (Other)
  Sender: FDA-Public Use
  Company Number: US-BRISTOL-MYERS SQUIBB COMPANY-17370560

PATIENT
  Age: 54 Year
  Sex: Female

DRUGS (1)
  1. ERBITUX [Suspect]
     Indication: COLON CANCER
     Dosage: RESTARTED ON 22FEB2013
     Route: 040

REACTIONS (2)
  - Hypersensitivity [Recovered/Resolved]
  - Diarrhoea [Unknown]
